FAERS Safety Report 14306087 (Version 1)
Quarter: 2017Q4

REPORT INFORMATION
  Report Type: Spontaneous
  Country: US (occurrence: US)
  Receive Date: 20171219
  Receipt Date: 20171219
  Transmission Date: 20180321
  Serious: Yes (Death)
  Sender: FDA-Public Use
  Company Number: US-MALLINCKRODT-T201705148

PATIENT
  Age: 35 Year
  Sex: Male

DRUGS (9)
  1. HYDROCODONE/ACETAMINOPHEN [Suspect]
     Active Substance: ACETAMINOPHEN\HYDROCODONE
     Indication: PRODUCT USED FOR UNKNOWN INDICATION
     Route: 048
  2. HEROIN [Suspect]
     Active Substance: DIAMORPHINE
     Dosage: UNK
  3. HYDROCODONE/ACETAMINOPHEN [Suspect]
     Active Substance: ACETAMINOPHEN\HYDROCODONE
     Dosage: UNK
  4. HYDROCODONE/ACETAMINOPHEN [Suspect]
     Active Substance: ACETAMINOPHEN\HYDROCODONE
     Dosage: UNK
     Route: 051
  5. COCAINE [Suspect]
     Active Substance: COCAINE
     Indication: PRODUCT USED FOR UNKNOWN INDICATION
     Dosage: UNK
     Route: 048
  6. HEROIN [Suspect]
     Active Substance: DIAMORPHINE
     Indication: PRODUCT USED FOR UNKNOWN INDICATION
     Route: 048
  7. COCAINE [Suspect]
     Active Substance: COCAINE
     Dosage: UNK
  8. COCAINE [Suspect]
     Active Substance: COCAINE
     Dosage: UNK
     Route: 051
  9. HEROIN [Suspect]
     Active Substance: DIAMORPHINE
     Dosage: UNK
     Route: 051

REACTIONS (2)
  - Incorrect route of drug administration [Fatal]
  - Drug abuse [Fatal]

NARRATIVE: CASE EVENT DATE: 2016
